FAERS Safety Report 6807169-X (Version None)
Quarter: 2010Q2

REPORT INFORMATION
  Report Type: 
  Country: None (occurrence: None)
  Receive Date: 20100629
  Receipt Date: 20080722
  Transmission Date: 20101027
  Serious: No
  Sender: FDA-Public Use
  Company Number: US-PFIZER INC-2008051637

PATIENT
  Sex: Female
  Weight: 55.5 kg

DRUGS (9)
  1. XANAX [Suspect]
     Indication: ANXIETY
  2. XANAX [Suspect]
     Indication: SLEEP DISORDER
  3. ALPRAZOLAM [Suspect]
     Indication: ANXIETY
     Dates: start: 20060101
  4. ALPRAZOLAM [Suspect]
     Indication: SLEEP DISORDER
  5. LYRICA [Suspect]
  6. NEURONTIN [Suspect]
     Indication: DEPRESSION
  7. ESTROGENS [Concomitant]
     Indication: HOT FLUSH
  8. DILTIAZEM [Concomitant]
  9. LANOXIN [Concomitant]

REACTIONS (9)
  - DEPRESSION [None]
  - DRUG INEFFECTIVE [None]
  - HANGOVER [None]
  - HERPES ZOSTER [None]
  - INSOMNIA [None]
  - MALAISE [None]
  - NERVOUSNESS [None]
  - POST HERPETIC NEURALGIA [None]
  - PRODUCT QUALITY ISSUE [None]
